FAERS Safety Report 6220377-4 (Version None)
Quarter: 2009Q2

REPORT INFORMATION
  Report Type: 
  Country: None (occurrence: None)
  Receive Date: 20090610
  Receipt Date: 20090528
  Transmission Date: 20091009
  Serious: Yes (Death, Other)
  Sender: FDA-Public Use
  Company Number: GB-PFIZER INC-2009220546

PATIENT
  Age: 63 Year

DRUGS (4)
  1. GABAPENTIN [Suspect]
     Indication: NEURALGIA
  2. BUPIVACAINE HCL [Suspect]
     Indication: NEURALGIA
     Dosage: UNK ML, UNK
     Route: 008
  3. CLONIDINE [Suspect]
     Indication: NEURALGIA
     Route: 008
  4. MORPHINE HCL ELIXIR [Suspect]
     Indication: NEURALGIA
     Dosage: UNK
     Route: 008

REACTIONS (2)
  - DEATH [None]
  - DRUG INEFFECTIVE [None]
